FAERS Safety Report 5122859-5 (Version None)
Quarter: 2006Q4

REPORT INFORMATION
  Report Type: 
  Country: None (occurrence: None)
  Receive Date: 20061004
  Receipt Date: 20061004
  Transmission Date: 20070319
  Serious: Yes (Disabling, Other)
  Sender: FDA-Public Use
  Company Number: None

PATIENT
  Sex: Male
  Weight: 79.3795 kg

DRUGS (2)
  1. AVODART [Suspect]
     Indication: PROSTATE EXAMINATION ABNORMAL
     Dosage: ONE CAPSULE ONCE PER DAY
     Dates: start: 20060830, end: 20060901
  2. FLOMAX [Concomitant]

REACTIONS (5)
  - DYSURIA [None]
  - NERVE INJURY [None]
  - PAIN [None]
  - PROCTALGIA [None]
  - WALKING DISABILITY [None]
